FAERS Safety Report 24937931 (Version 1)
Quarter: 2025Q1

REPORT INFORMATION
  Report Type: Spontaneous
  Country: AU (occurrence: AU)
  Receive Date: 20250206
  Receipt Date: 20250206
  Transmission Date: 20250409
  Serious: Yes (Death, Other)
  Sender: ALEXION PHARMACEUTICALS
  Company Number: AU-ASTRAZENECA-202502OCE000170AU

PATIENT
  Age: 53 Year

DRUGS (4)
  1. TICAGRELOR [Suspect]
     Active Substance: TICAGRELOR
     Route: 065
  2. ASPIRIN [Suspect]
     Active Substance: ASPIRIN
     Indication: Product used for unknown indication
     Route: 065
  3. ENOXAPARIN [Suspect]
     Active Substance: ENOXAPARIN
     Indication: Product used for unknown indication
     Route: 065
  4. TIROFIBAN [Suspect]
     Active Substance: TIROFIBAN
     Indication: Product used for unknown indication
     Route: 065

REACTIONS (2)
  - Multiple organ dysfunction syndrome [Fatal]
  - Thrombocytopenia [Fatal]
